FAERS Safety Report 8470418-9 (Version None)
Quarter: 2012Q2

REPORT INFORMATION
  Report Type: 
  Country: None (occurrence: None)
  Receive Date: 20120620
  Receipt Date: 20120607
  Transmission Date: 20120825
  Serious: Yes (Other)
  Sender: FDA-Public Use
  Company Number: 2012MA007116

PATIENT
  Age: 68 Year
  Sex: Male

DRUGS (2)
  1. MULTIPLE UNNAMED MEDICATION [Concomitant]
  2. PRAMIPEXOLE DIHYDROCHLORIDE [Suspect]
     Indication: PARKINSON'S DISEASE
     Dosage: 0.25 MG, TID, PO
     Route: 048
     Dates: start: 20120501

REACTIONS (9)
  - DEPRESSION [None]
  - OBSESSIVE-COMPULSIVE DISORDER [None]
  - ABNORMAL BEHAVIOUR [None]
  - CRYING [None]
  - COMMUNICATION DISORDER [None]
  - BIPOLAR I DISORDER [None]
  - IMPULSIVE BEHAVIOUR [None]
  - PERSONALITY CHANGE [None]
  - AGGRESSION [None]
